FAERS Safety Report 8165612-0 (Version None)
Quarter: 2012Q1

REPORT INFORMATION
  Report Type: 
  Country: None (occurrence: None)
  Receive Date: 20120103
  Receipt Date: 20111017
  Transmission Date: 20120608
  Serious: No
  Sender: FDA-Public Use
  Company Number: AE-2011-002441

PATIENT
  Sex: Female
  Weight: 64.8644 kg

DRUGS (5)
  1. RIBAVIRIN [Concomitant]
  2. PREVACID [Concomitant]
  3. PAXIL [Concomitant]
  4. PEGASYS [Concomitant]
  5. INCIVEK [Suspect]
     Dosage: 2250 MG (1125 MG, 2 IN 1 D), ORAL
     Route: 048
     Dates: start: 20111001

REACTIONS (12)
  - DYSPNOEA [None]
  - ANAEMIA [None]
  - RASH ERYTHEMATOUS [None]
  - PRURITUS [None]
  - HEADACHE [None]
  - FATIGUE [None]
  - CONFUSIONAL STATE [None]
  - DRY SKIN [None]
  - MEMORY IMPAIRMENT [None]
  - DIZZINESS [None]
  - HAEMORRHOIDS [None]
  - DIARRHOEA [None]
